FAERS Safety Report 8666640 (Version 2)
Quarter: 2012Q4

REPORT INFORMATION
  Report Type: Spontaneous
  Country: GB (occurrence: None)
  Receive Date: 20120629
  Receipt Date: 20121009
  Transmission Date: 20130627
  Serious: Yes (Disabling, Other)
  Sender: FDA-Public Use
  Company Number: 2012-00879

PATIENT
  Age: 83 Year
  Sex: Female
  Weight: 50 kg

DRUGS (3)
  1. SIMVASTATIN [Suspect]
     Indication: PRODUCT USED FOR UNKNOWN INDICATION
     Route: 048
     Dates: start: 20120504, end: 20120518
  2. CLOPIDOGREL [Suspect]
     Indication: PRODUCT USED FOR UNKNOWN INDICATION
     Route: 048
     Dates: start: 20120504, end: 20120518
  3. CITALOPRAM HYDROBROMIDE [Suspect]

REACTIONS (4)
  - Anxiety [None]
  - Panic attack [None]
  - Condition aggravated [None]
  - Drug interaction [None]
